FAERS Safety Report 5462907-6 (Version None)
Quarter: 2007Q3

REPORT INFORMATION
  Report Type: 
  Country: None (occurrence: None)
  Receive Date: 20070920
  Receipt Date: 20070910
  Transmission Date: 20080115
  Serious: Yes (Hospitalization, Other)
  Sender: FDA-Public Use
  Company Number: PT-ASTRAZENECA-2007AC01741

PATIENT
  Age: 29 Year
  Sex: Female

DRUGS (3)
  1. ZOLMITRIPTAN [Suspect]
     Indication: HEADACHE
     Dosage: PROGRESSIVE INCREASE
  2. ZOLMITRIPTAN [Suspect]
  3. NIMESULIDE [Concomitant]
     Indication: HEADACHE
     Dates: start: 20050201

REACTIONS (3)
  - DRUG ABUSER [None]
  - HEADACHE [None]
  - OVERDOSE [None]
